FAERS Safety Report 20719770 (Version 2)
Quarter: 2022Q2

REPORT INFORMATION
  Report Type: Other
  Country: US (occurrence: None)
  Receive Date: 20220418
  Receipt Date: 20220506
  Transmission Date: 20220721
  Serious: Yes (Death)
  Sender: FDA-Public Use
  Company Number: US-ROCHE-2388152

PATIENT
  Age: 85 Year
  Sex: Female

DRUGS (4)
  1. PULMOZYME [Suspect]
     Active Substance: DORNASE ALFA
     Indication: Respiratory failure
     Dosage: NEBULIZE THE CONTENTS OF 1 VIAL(S) TWICE A DAY
     Route: 055
     Dates: start: 20190802, end: 20220215
  2. PULMOZYME [Suspect]
     Active Substance: DORNASE ALFA
     Indication: Pneumonitis
  3. PULMOZYME [Suspect]
     Active Substance: DORNASE ALFA
     Indication: Pneumonia
  4. PULMOZYME [Suspect]
     Active Substance: DORNASE ALFA
     Indication: Cystic fibrosis

REACTIONS (4)
  - Cough [Unknown]
  - Off label use [Unknown]
  - Secretion discharge [Unknown]
  - Glioblastoma [Fatal]

NARRATIVE: CASE EVENT DATE: 20220318
